FAERS Safety Report 6467332-7 (Version None)
Quarter: 2009Q4

REPORT INFORMATION
  Report Type: 
  Country: None (occurrence: None)
  Receive Date: 20091202
  Receipt Date: 20091127
  Transmission Date: 20100525
  Serious: Yes (Life-Threatening, Hospitalization, Other)
  Sender: FDA-Public Use
  Company Number: DE-BRISTOL-MYERS SQUIBB COMPANY-14850838

PATIENT
  Age: 62 Year
  Sex: Male

DRUGS (5)
  1. ERBITUX [Suspect]
     Indication: HYPOPHARYNGEAL CANCER
     Route: 042
     Dates: start: 20091030, end: 20091030
  2. CISPLATIN [Suspect]
     Indication: HYPOPHARYNGEAL CANCER
     Dosage: RECENT DOSE ON 30OCT09
  3. DEXAMETHASONE TAB [Concomitant]
     Indication: PREMEDICATION
     Dosage: ALSO TAKEN ON 30OCT2009
     Route: 042
  4. GRANISETRON HCL [Concomitant]
     Route: 042
  5. CLEMASTINE FUMARATE [Concomitant]
     Indication: PREMEDICATION
     Dosage: ALSO TAKEN ON 30OCT2009
     Route: 042

REACTIONS (1)
  - ANAPHYLACTIC REACTION [None]
